FAERS Safety Report 7951591-5 (Version None)
Quarter: 2011Q4

REPORT INFORMATION
  Report Type: 
  Country: None (occurrence: None)
  Receive Date: 20111201
  Receipt Date: 20111122
  Transmission Date: 20120403
  Serious: Yes (Hospitalization)
  Sender: FDA-Public Use
  Company Number: DE-ROCHE-1009730

PATIENT
  Age: 54 Year
  Sex: Male
  Weight: 88 kg

DRUGS (10)
  1. RESTEX [Concomitant]
     Dosage: 100/25 MG
     Dates: start: 20111025
  2. FENTANYL [Concomitant]
     Dosage: 12 MG/HOUR
     Dates: start: 20111017, end: 20111121
  3. ZOPICLON [Concomitant]
     Dates: start: 20111025
  4. ZOLEDRONIC ACID [Concomitant]
     Dates: start: 20111017
  5. DEXAMETHASONE SODIUM PHOSPHATE [Concomitant]
     Dates: start: 20111026, end: 20111121
  6. PANTOPRAZOLE [Concomitant]
     Dates: start: 20111027
  7. MOVIPREP [Concomitant]
     Dates: start: 20111017
  8. VEMURAFENIB [Suspect]
     Indication: METASTATIC MALIGNANT MELANOMA
     Dosage: LAST DOS EPRIOR TO SAE 21 NOV 2011
     Route: 048
     Dates: start: 20111101
  9. IBUPROFEN [Concomitant]
     Dates: start: 20111027, end: 20111122
  10. METAMIZOL [Concomitant]
     Dates: start: 20111017

REACTIONS (2)
  - ANAEMIA [None]
  - HYDROCEPHALUS [None]
